FAERS Safety Report 8990968 (Version 3)
Quarter: 2014Q2

REPORT INFORMATION
  Report Type: Spontaneous
  Country: US (occurrence: None)
  Receive Date: 20120508
  Receipt Date: 20140418
  Transmission Date: 20141212
  Serious: Yes (Hospitalization, Other)
  Sender: FDA-Public Use
  Company Number: 2010US003429

PATIENT
  Age: 51 Year
  Sex: Male
  Weight: 62 kg

DRUGS (15)
  1. PROGRAF (TACROLIMUS) CAPSULE [Suspect]
     Indication: RENAL TRANSPLANT
     Dosage: 2 MG, UID/QD, ORAL
     Route: 048
     Dates: start: 19960903
  2. MYFORTIC (MYCOPHENOLIC ACID) TABLET [Concomitant]
  3. PREDNISONE (PREDNISONE) [Concomitant]
  4. AMLODIPINE (AMLOIDPINE) [Concomitant]
  5. ATENOLOL (ATENOLOL) [Concomitant]
  6. LEXAPRO (ESCITALOPRAM OXALATE) [Concomitant]
  7. NEXIUM I.V. [Suspect]
     Indication: GASTROOESOPHAGEAL REFLUX DISEASE
     Route: 048
     Dates: end: 201310
  8. MVI (VITAMINS NOS) [Concomitant]
  9. VITAMIN D (ERGOCALCIFEROL) [Concomitant]
  10. BACTRIM (SULFAMETHOXAZOLE) [Concomitant]
  11. SIMVASTATIN (SIMVASTATIN) [Concomitant]
  12. CELLCEPT (MYCOPHENOLATE MOFETIL) TABLET [Concomitant]
  13. VALCYTE (VALGANCICLOVIR HYDROCHLORIDE) [Concomitant]
  14. ASPIRIN (ACETYLSALICYLIC ACID) [Concomitant]
  15. HEPARIN (HEPARIN) [Suspect]
     Indication: PRODUCT USED FOR UNKNOWN INDICATION

REACTIONS (15)
  - Transplant failure [None]
  - Cholecystectomy [None]
  - Ascites [None]
  - Hepatic encephalopathy [None]
  - Hypoalbuminaemia [None]
  - Portal hypertension [None]
  - Abdominal hernia [None]
  - Mental status changes [None]
  - Immunosuppressant drug level increased [None]
  - Leukocytosis [None]
  - Dysphagia [None]
  - Hypersensitivity [None]
  - Lung disorder [None]
  - Anxiety [None]
  - Pleural effusion [None]
